FAERS Safety Report 19975806 (Version 1)
Quarter: 2021Q4

REPORT INFORMATION
  Report Type: Spontaneous
  Country: US (occurrence: US)
  Receive Date: 20211020
  Receipt Date: 20211020
  Transmission Date: 20220303
  Serious: No
  Sender: FDA-Public Use
  Company Number: US-NESTLEHEALTHSCIENCE-202000130

PATIENT
  Age: 71 Year
  Sex: Male
  Weight: 18.6 kg

DRUGS (1)
  1. AMYLASE\LIPASE\PROTEASE [Suspect]
     Active Substance: AMYLASE\LIPASE\PROTEASE
     Dosage: 15,000USP: 8 PILLS FOR THE LARGE MEALS AND 3 TO 4 PILLS FOR SMALLER (SNAKE) MEALS; OVER 30 PILLS /D

REACTIONS (3)
  - Headache [Not Recovered/Not Resolved]
  - Insomnia [Not Recovered/Not Resolved]
  - Night sweats [Not Recovered/Not Resolved]
